FAERS Safety Report 14375570 (Version 1)
Quarter: 2018Q1

REPORT INFORMATION
  Report Type: Spontaneous
  Country: US (occurrence: US)
  Receive Date: 20180110
  Receipt Date: 20180110
  Transmission Date: 20180509
  Serious: Yes (Other)
  Sender: FDA-Public Use
  Company Number: None

PATIENT
  Age: 44 Year
  Sex: Female
  Weight: 113.4 kg

DRUGS (1)
  1. NIFEDIPINE EXTENDED-RELEASE [Suspect]
     Active Substance: NIFEDIPINE
     Indication: BLOOD PRESSURE MEASUREMENT
     Route: 048
     Dates: start: 20171201, end: 20171212

REACTIONS (4)
  - Diarrhoea [None]
  - Myalgia [None]
  - Peripheral coldness [None]
  - Headache [None]

NARRATIVE: CASE EVENT DATE: 20170512
